FAERS Safety Report 26165294 (Version 1)
Quarter: 2025Q4

REPORT INFORMATION
  Report Type: Report from Study
  Country: GB (occurrence: GB)
  Receive Date: 20251216
  Receipt Date: 20251216
  Transmission Date: 20260117
  Serious: Yes (Other)
  Sender: TEVA
  Company Number: GB-TEVA-VS-3403102

PATIENT
  Age: 63 Year
  Sex: Female

DRUGS (2)
  1. TERIPARATIDE [Suspect]
     Active Substance: TERIPARATIDE
     Indication: Osteoporosis
     Dosage: STOPPED IT PREVIOUSLY
     Route: 058
     Dates: start: 202401
  2. TERIPARATIDE [Suspect]
     Active Substance: TERIPARATIDE
     Dosage: RESTARTED
     Route: 058
     Dates: end: 202511

REACTIONS (4)
  - Lung neoplasm malignant [Unknown]
  - Malaise [Unknown]
  - Product dose omission issue [Unknown]
  - Abdominal pain upper [Unknown]
